FAERS Safety Report 10468498 (Version 2)
Quarter: 2014Q3

REPORT INFORMATION
  Report Type: Spontaneous
  Country: US (occurrence: US)
  Receive Date: 20140922
  Receipt Date: 20140922
  Transmission Date: 20150326
  Serious: No
  Sender: FDA-Public Use
  Company Number: US-ALLERGAN-1312003US

PATIENT
  Age: 59 Year
  Sex: Female

DRUGS (3)
  1. LASTACAFT [Suspect]
     Active Substance: ALCAFTADINE
     Indication: HYPERSENSITIVITY
     Dosage: 1 GTT, QD
     Route: 047
     Dates: start: 20130806, end: 20130806
  2. SYSTANE ULTRA CLEAR [Concomitant]
     Indication: DRY EYE
  3. PRESCRIPTION MEDICATIONS NOS [Concomitant]
     Indication: PRODUCT USED FOR UNKNOWN INDICATION

REACTIONS (12)
  - Dysphonia [Recovered/Resolved]
  - Dehydration [Recovered/Resolved]
  - Somnolence [Recovered/Resolved]
  - Dysstasia [Recovered/Resolved]
  - Dry mouth [Recovered/Resolved]
  - Somnolence [Recovered/Resolved]
  - Laceration [Recovered/Resolved]
  - Clumsiness [Recovered/Resolved]
  - Hypersensitivity [Recovered/Resolved]
  - Feeling jittery [Recovered/Resolved]
  - Abnormal dreams [Recovered/Resolved]
  - Hyperhidrosis [Recovered/Resolved]

NARRATIVE: CASE EVENT DATE: 20130806
